FAERS Safety Report 9099234 (Version 1)
Quarter: 2013Q1

REPORT INFORMATION
  Report Type: Spontaneous
  Country: US (occurrence: US)
  Receive Date: 20130214
  Receipt Date: 20130214
  Transmission Date: 20140127
  Serious: Yes (Death)
  Sender: FDA-Public Use
  Company Number: US-BANPHARM-20130732

PATIENT
  Age: 29 Year
  Sex: Male

DRUGS (6)
  1. IBUPROFEN UNKNOWN PRODUCT [Suspect]
     Route: 048
  2. CARISOPRODOL [Suspect]
  3. ALPRAZOLAM [Suspect]
  4. METHADONE [Suspect]
  5. ACETAMINOPHEN [Suspect]
  6. SALICYLATE [Suspect]

REACTIONS (2)
  - Cardio-respiratory arrest [Fatal]
  - Drug abuse [Fatal]
